FAERS Safety Report 4801580-4 (Version None)
Quarter: 2005Q4

REPORT INFORMATION
  Report Type: 
  Country: None (occurrence: None)
  Receive Date: 20051012
  Receipt Date: 20050926
  Transmission Date: 20060501
  Serious: Yes (Hospitalization)
  Sender: FDA-Public Use
  Company Number: PL-2005-018367

PATIENT
  Age: 23 Year
  Sex: Male

DRUGS (10)
  1. BETAFERON 250?G, 500?G AND COPAXONE (BETAFERON (SH Y03967A))INJECTION, [Suspect]
     Indication: MULTIPLE SCLEROSIS
     Dosage: 0.5 ML, 0.25 ML
     Dates: start: 20041103, end: 20050517
  2. BETAFERON 250?G, 500?G AND COPAXONE (BETAFERON (SH Y03967A))INJECTION, [Suspect]
     Indication: MULTIPLE SCLEROSIS
     Dosage: 0.5 ML, 0.25 ML
     Dates: start: 20050530, end: 20050723
  3. BETAFERON 250?G, 500?G AND COPAXONE (BETAFERON (SH Y03967A))INJECTION, [Suspect]
     Indication: MULTIPLE SCLEROSIS
     Dosage: 0.5 ML, 0.25 ML
     Dates: start: 20050802, end: 20050827
  4. METHYLPREDNISOLONE [Concomitant]
  5. RISPEN (RISPERIDONE) [Concomitant]
  6. IMIPRAMINE [Concomitant]
  7. FLUOXETINE [Concomitant]
  8. BROMAZEPAM (BROMAZEPAM) [Concomitant]
  9. SULPIRIDE [Concomitant]
  10. NAPROXEN [Concomitant]

REACTIONS (1)
  - BIPOLAR I DISORDER [None]
